FAERS Safety Report 15375467 (Version 2)
Quarter: 2018Q4

REPORT INFORMATION
  Report Type: Report from Study
  Country: US (occurrence: US)
  Receive Date: 20180912
  Receipt Date: 20181009
  Transmission Date: 20190204
  Serious: Yes (Death, Disabling)
  Sender: FDA-Public Use
  Company Number: US-BAYER-2018-166992

PATIENT
  Age: 61 Year
  Sex: Male

DRUGS (1)
  1. NEXAVAR [Suspect]
     Active Substance: SORAFENIB
     Indication: HEPATOCELLULAR CARCINOMA
     Dosage: 400 MG, BID
     Dates: start: 20180829, end: 20180926

REACTIONS (9)
  - Gait inability [Fatal]
  - Asthenia [Fatal]
  - Diarrhoea [Fatal]
  - Fatigue [Fatal]
  - Skin fissures [Fatal]
  - Lip exfoliation [Fatal]
  - Abdominal distension [Fatal]
  - Blister [Fatal]
  - Palmar-plantar erythrodysaesthesia syndrome [Fatal]
